FAERS Safety Report 13135734 (Version 1)
Quarter: 2017Q1

REPORT INFORMATION
  Report Type: Spontaneous
  Country: GB (occurrence: GB)
  Receive Date: 20170120
  Receipt Date: 20170120
  Transmission Date: 20170428
  Serious: Yes (Congenital Anomaly)
  Sender: FDA-Public Use
  Company Number: GB-ABBVIE-17P-167-1846660-00

PATIENT
  Sex: Male

DRUGS (1)
  1. EPILIM [Suspect]
     Active Substance: VALPROATE SODIUM
     Indication: MATERNAL EXPOSURE TIMING UNSPECIFIED
     Route: 064

REACTIONS (11)
  - Hypotonia [Unknown]
  - Cleft palate [Unknown]
  - Speech disorder developmental [Unknown]
  - Dysphagia [Unknown]
  - Tracheal disorder [Unknown]
  - Balance disorder [Unknown]
  - Hypertonia [Unknown]
  - Foetal exposure timing unspecified [Unknown]
  - Dyspnoea [Unknown]
  - Gait disturbance [Unknown]
  - Dyspepsia [Unknown]
